FAERS Safety Report 23744889 (Version 3)
Quarter: 2025Q3

REPORT INFORMATION
  Report Type: Report from Study
  Country: CA (occurrence: CA)
  Receive Date: 20240415
  Receipt Date: 20250905
  Transmission Date: 20251021
  Serious: Yes (Other)
  Sender: SANDOZ
  Company Number: CA-SANDOZ-SDZ2024CA038727

PATIENT
  Sex: Female

DRUGS (2)
  1. HYRIMOZ [Suspect]
     Active Substance: ADALIMUMAB-ADAZ
     Indication: Ankylosing spondylitis
     Dosage: 40 MG, QW
     Route: 058
     Dates: start: 20220321
  2. HYRIMOZ [Suspect]
     Active Substance: ADALIMUMAB-ADAZ
     Indication: Crohn^s disease
     Dosage: 40 MG, Q2W
     Route: 058
     Dates: start: 20220321

REACTIONS (9)
  - Arthritis-dermatitis syndrome [Unknown]
  - Ankylosing spondylitis [Unknown]
  - Neutrophilic dermatosis [Unknown]
  - General physical health deterioration [Unknown]
  - Aphthous ulcer [Unknown]
  - Arthralgia [Unknown]
  - Abdominal rigidity [Unknown]
  - Abdominal pain [Unknown]
  - Off label use [Unknown]
